FAERS Safety Report 9057381 (Version 4)
Quarter: 2013Q2

REPORT INFORMATION
  Report Type: Spontaneous
  Country: US (occurrence: US)
  Receive Date: 20130204
  Receipt Date: 20130402
  Transmission Date: 20140414
  Serious: Yes (Hospitalization)
  Sender: FDA-Public Use
  Company Number: US-GILEAD-2013-0068620

PATIENT
  Sex: Female

DRUGS (3)
  1. LETAIRIS [Suspect]
     Indication: PULMONARY ARTERIAL HYPERTENSION
     Dosage: 5 MG, QD
     Dates: start: 20121107
  2. LETAIRIS [Suspect]
     Indication: COR PULMONALE
  3. REVATIO [Concomitant]

REACTIONS (2)
  - Pulmonary hypertension [Unknown]
  - Hypertension [Unknown]
